FAERS Safety Report 20137406 (Version 2)
Quarter: 2021Q4

REPORT INFORMATION
  Report Type: Spontaneous
  Country: DE (occurrence: DE)
  Receive Date: 20211201
  Receipt Date: 20211215
  Transmission Date: 20220303
  Serious: Yes (Other)
  Sender: FDA-Public Use
  Company Number: DE-Orion Corporation ORION PHARMA-BECL2021-0011

PATIENT
  Age: 67 Year
  Sex: Male

DRUGS (2)
  1. RAMIPRIL [Suspect]
     Active Substance: RAMIPRIL
     Indication: Blood pressure measurement
     Dosage: UNK (ONCE BEFORE AND ONCE AFTER LUNCH )
     Route: 065
  2. BECLOMETHASONE DIPROPIONATE [Suspect]
     Active Substance: BECLOMETHASONE DIPROPIONATE
     Indication: Asthma
     Dosage: UNK (STRENGTH: 0,1MG/DOSE, 3-4 TIMES)
     Route: 055
     Dates: start: 20211018, end: 2021

REACTIONS (11)
  - Hypothermia [Unknown]
  - Infection [Recovered/Resolved]
  - Cough [Unknown]
  - Pharyngeal inflammation [Unknown]
  - Vision blurred [Recovered/Resolved]
  - Dysphonia [Unknown]
  - Influenza like illness [Unknown]
  - Rhinorrhoea [Unknown]
  - Intentional dose omission [Recovered/Resolved]
  - Product label issue [Unknown]
  - Product complaint [Unknown]

NARRATIVE: CASE EVENT DATE: 20210101
